FAERS Safety Report 5390098-9 (Version None)
Quarter: 2007Q3

REPORT INFORMATION
  Report Type: 
  Country: None (occurrence: None)
  Receive Date: 20070718
  Receipt Date: 20070717
  Transmission Date: 20080115
  Serious: Yes (Death, Life-Threatening, Hospitalization)
  Sender: FDA-Public Use
  Company Number: B0464932A

PATIENT
  Age: 5 Year
  Sex: Male
  Weight: 16.1 kg

DRUGS (2)
  1. RELENZA [Suspect]
     Indication: INFLUENZA
     Dosage: 10MG TWICE PER DAY
     Route: 055
     Dates: start: 20070308, end: 20070309
  2. AMOXICILLIN TRIHYDRATE [Suspect]
     Indication: DRUG USE FOR UNKNOWN INDICATION
     Route: 048
     Dates: start: 20070310

REACTIONS (23)
  - BILIRUBIN CONJUGATED [None]
  - BLISTER [None]
  - BLOOD AMYLASE INCREASED [None]
  - BLOOD BILIRUBIN INCREASED [None]
  - BLOOD CREATINE PHOSPHOKINASE INCREASED [None]
  - BLOOD FIBRINOGEN DECREASED [None]
  - BLOOD LACTATE DEHYDROGENASE ABNORMAL [None]
  - BLOOD UREA INCREASED [None]
  - COAGULATION TEST ABNORMAL [None]
  - ERYTHEMA [None]
  - FLUSHING [None]
  - HAEMATOCRIT DECREASED [None]
  - HAEMOGLOBIN DECREASED [None]
  - HAEMORRHAGE INTRACRANIAL [None]
  - INTRA-ABDOMINAL HAEMORRHAGE [None]
  - PLATELET COUNT ABNORMAL [None]
  - PURPURA [None]
  - RASH [None]
  - RED BLOOD CELL COUNT DECREASED [None]
  - TOXIC EPIDERMAL NECROLYSIS [None]
  - TRANSAMINASES INCREASED [None]
  - ULCER [None]
  - WHITE BLOOD CELL COUNT DECREASED [None]
